FAERS Safety Report 8446009-2 (Version None)
Quarter: 2012Q2

REPORT INFORMATION
  Report Type: 
  Country: None (occurrence: None)
  Receive Date: 20120323
  Receipt Date: 20110811
  Transmission Date: 20120825
  Serious: Yes (Other)
  Sender: FDA-Public Use
  Company Number: 163-21880-11063840

PATIENT
  Age: 77 Year
  Sex: Male

DRUGS (8)
  1. LENALIDOMIDE [Suspect]
     Indication: MULTIPLE MYELOMA
     Dosage: 25 MG, /28 CAPS, PO
     Route: 048
     Dates: start: 20110415
  2. CITALOPRAM HYDROBROMIDE [Concomitant]
  3. ASPIRIN [Concomitant]
  4. ATENOLOL [Concomitant]
  5. HYDROCHLOROTHIAZIDE [Concomitant]
  6. PREDNISONE TAB [Concomitant]
  7. HYDREA [Concomitant]
  8. DOXAZOSIN MESYLATE (DOXAZOSIN MESILATE) [Concomitant]

REACTIONS (1)
  - WHITE BLOOD CELL COUNT DECREASED [None]
